FAERS Safety Report 14077574 (Version 1)
Quarter: 2017Q4

REPORT INFORMATION
  Report Type: Spontaneous
  Country: US (occurrence: US)
  Receive Date: 20171012
  Receipt Date: 20171012
  Transmission Date: 20180321
  Serious: No
  Sender: FDA-Public Use
  Company Number: US-ASTRAZENECA-2017SF01624

PATIENT
  Sex: Female
  Weight: 40.8 kg

DRUGS (9)
  1. MOVANTIK [Suspect]
     Active Substance: NALOXEGOL OXALATE
     Indication: CONSTIPATION
     Route: 048
     Dates: start: 20170920, end: 20171002
  2. MIRALAX [Concomitant]
     Active Substance: POLYETHYLENE GLYCOL 3350
     Indication: CONSTIPATION
     Dosage: UNKNOWN, THREE TIMES A DAY.
     Route: 048
  3. SPIRIVA [Concomitant]
     Active Substance: TIOTROPIUM BROMIDE MONOHYDRATE
     Indication: ASTHMA
     Dosage: UNKNOQN, DAILY.
     Route: 055
  4. ADVAIR HFA [Concomitant]
     Active Substance: FLUTICASONE PROPIONATE\SALMETEROL XINAFOATE
     Indication: ASTHMA
     Dosage: UNKNOWN, TWO TIMES A DAY.
     Route: 055
  5. ADVAIR HFA [Concomitant]
     Active Substance: FLUTICASONE PROPIONATE\SALMETEROL XINAFOATE
     Indication: MULTIPLE ALLERGIES
     Dosage: UNKNOWN, TWO TIMES A DAY.
     Route: 055
  6. MOVANTIK [Suspect]
     Active Substance: NALOXEGOL OXALATE
     Indication: COLONOSCOPY ABNORMAL
     Route: 048
     Dates: start: 20170920, end: 20171002
  7. XANAX [Concomitant]
     Active Substance: ALPRAZOLAM
     Dosage: 0.25MG UNKNOWN
     Route: 048
  8. PERCOCET [Concomitant]
     Active Substance: ACETAMINOPHEN\OXYCODONE HYDROCHLORIDE
     Indication: STENOSIS
     Dosage: UNKNOWN, EVERY SIX HOURS.
     Route: 048
  9. SPIRIVA [Concomitant]
     Active Substance: TIOTROPIUM BROMIDE MONOHYDRATE
     Indication: MULTIPLE ALLERGIES
     Dosage: UNKNOQN, DAILY.
     Route: 055

REACTIONS (4)
  - Scar [Unknown]
  - Drug ineffective [Unknown]
  - Frequent bowel movements [Unknown]
  - Adhesion [Unknown]
